FAERS Safety Report 6194567-3 (Version None)
Quarter: 2009Q2

REPORT INFORMATION
  Report Type: 
  Country: None (occurrence: None)
  Receive Date: 20090519
  Receipt Date: 20090514
  Transmission Date: 20091009
  Serious: Yes (Hospitalization)
  Sender: FDA-Public Use
  Company Number: CH-ROCHE-633145

PATIENT
  Age: 82 Year
  Sex: Male

DRUGS (13)
  1. RIVOTRIL [Suspect]
     Indication: DRUG USE FOR UNKNOWN INDICATION
     Route: 048
  2. NEURONTIN [Interacting]
     Dosage: DRUG NAME: NEURONTIN 800 FORMULATION: COATED TABLETS, FILM.
     Route: 048
     Dates: end: 20090310
  3. HALDOL [Interacting]
     Indication: DRUG USE FOR UNKNOWN INDICATION
     Route: 048
     Dates: start: 20090307, end: 20090308
  4. HALDOL [Interacting]
     Dosage: DOSAGE REGIMEN: 2 TOTAL FORMULATION: VIAL
     Route: 058
     Dates: start: 20090309, end: 20090309
  5. TIENAM [Concomitant]
     Dosage: FORMULATION: VIAL
     Route: 041
     Dates: start: 20090308, end: 20090310
  6. INSULIN [Concomitant]
  7. LIQUAEMIN INJ [Concomitant]
     Dosage: FORMULATION: VIAL.
     Route: 058
     Dates: start: 20090308, end: 20090310
  8. ASPIRIN [Concomitant]
     Dosage: FORMULATION: COATED TABLETS, FILM
     Route: 048
  9. COVERSUM [Concomitant]
     Route: 048
  10. NEXIUM [Concomitant]
     Route: 048
  11. AKINETON [Concomitant]
     Route: 048
  12. TIAPRIDAL [Concomitant]
     Route: 048
  13. NITRODERM [Concomitant]
     Dosage: FORMULATION: MEDICATED DRESSINGS, TRANSDERMAL PATCHES
     Route: 003
     Dates: start: 20090308

REACTIONS (2)
  - ALTERED STATE OF CONSCIOUSNESS [None]
  - DRUG INTERACTION [None]
